FAERS Safety Report 4422264-0 (Version None)
Quarter: 2004Q3

REPORT INFORMATION
  Report Type: 
  Country: None (occurrence: None)
  Receive Date: 20040810
  Receipt Date: 20040806
  Transmission Date: 20050211
  Serious: Yes (Other)
  Sender: FDA-Public Use
  Company Number: CH-MERCK-0408CHE00007

PATIENT
  Age: 77 Year
  Sex: Female

DRUGS (14)
  1. ALBUTEROL SULFATE [Concomitant]
     Route: 055
  2. AMOXICILLIN AND CLAVULANATE POTASSIUM [Suspect]
     Indication: LUNG INFECTION
     Route: 048
     Dates: start: 20040518, end: 20040520
  3. PRIMAXIN [Suspect]
     Indication: LUNG INFECTION
     Route: 041
     Dates: start: 20040516, end: 20040518
  4. PRIMAXIN [Suspect]
     Route: 041
     Dates: start: 20040520, end: 20040524
  5. CLOPIDOGREL BISULFATE [Concomitant]
     Indication: PROPHYLAXIS
     Route: 048
  6. DEXAMETHASONE [Concomitant]
     Route: 048
     Dates: start: 20040518
  7. EPOETIN BETA [Concomitant]
     Route: 051
  8. ESOMEPRAZOLE MAGNESIUM [Concomitant]
     Route: 048
  9. INSULIN HUMAN, ISOPHANE [Concomitant]
     Indication: DIABETES MELLITUS
     Route: 058
  10. IPRATROPIUM BROMIDE [Concomitant]
     Route: 055
  11. LOSARTAN POTASSIUM [Concomitant]
     Indication: HYPERTENSION
     Route: 048
  12. METOPROLOL SUCCINATE [Concomitant]
     Indication: HYPERTENSION
     Route: 048
  13. NITROGLYCERIN [Concomitant]
     Route: 061
  14. TORSEMIDE [Concomitant]
     Indication: HYPERTENSION
     Route: 048

REACTIONS (2)
  - CONFUSIONAL STATE [None]
  - MYOCLONUS [None]
